FAERS Safety Report 23946208 (Version 1)
Quarter: 2024Q2

REPORT INFORMATION
  Report Type: Spontaneous
  Country: AU (occurrence: AU)
  Receive Date: 20240606
  Receipt Date: 20240606
  Transmission Date: 20240716
  Serious: Yes (Hospitalization, Other)
  Sender: FDA-Public Use
  Company Number: AU-009507513-2405AUS009706

PATIENT
  Age: 64 Year
  Sex: Male
  Weight: 69.4 kg

DRUGS (5)
  1. KEYTRUDA [Suspect]
     Active Substance: PEMBROLIZUMAB
     Indication: Neoplasm
     Dosage: 400 MILLIGRAM, EVERY 6 WEEKS
     Route: 042
     Dates: start: 20230220, end: 20230403
  2. CAFELKIBART [Suspect]
     Active Substance: CAFELKIBART
     Indication: Neoplasm
     Dosage: 694 MILLIGRAM, QOW
     Route: 042
     Dates: start: 20230220, end: 20230417
  3. THYROXINE [Concomitant]
     Active Substance: LEVOTHYROXINE
     Indication: Hypothyroidism
     Dosage: 150 MICROGRAM
     Route: 048
     Dates: start: 20221110
  4. BETAMETHASONE [Concomitant]
     Active Substance: BETAMETHASONE\BETAMETHASONE DIPROPIONATE
     Indication: Pruritus
     Dosage: 0.05 PERCENT
     Route: 061
     Dates: start: 20230327
  5. VITAMIN C [Concomitant]
     Active Substance: ASCORBIC ACID
     Indication: Prophylaxis
     Dosage: 500 MILLIGRAM
     Route: 048

REACTIONS (1)
  - Impaired gastric emptying [Not Recovered/Not Resolved]

NARRATIVE: CASE EVENT DATE: 20230427
